FAERS Safety Report 5714603-5 (Version None)
Quarter: 2008Q2

REPORT INFORMATION
  Report Type: 
  Country: None (occurrence: None)
  Receive Date: 20080423
  Receipt Date: 20080414
  Transmission Date: 20081010
  Serious: Yes (Other)
  Sender: FDA-Public Use
  Company Number: A0723705A

PATIENT
  Age: 13 Day
  Sex: Male
  Weight: 2.6 kg

DRUGS (7)
  1. ZIDOVUDINE [Suspect]
     Indication: PROPHYLAXIS AGAINST HIV INFECTION
     Dosage: 12MG TWICE PER DAY
     Route: 048
     Dates: start: 20080304
  2. NELFINAVIR [Suspect]
     Indication: PROPHYLAXIS AGAINST HIV INFECTION
     Dosage: 150MG TWICE PER DAY
     Route: 048
     Dates: start: 20080304, end: 20080317
  3. LAMIVUDINE [Suspect]
     Indication: PROPHYLAXIS AGAINST HIV INFECTION
     Dosage: 6MG TWICE PER DAY
     Route: 048
     Dates: start: 20080304, end: 20080317
  4. ZIDOVUDINE [Concomitant]
     Dosage: 20MG SINGLE DOSE
     Route: 048
     Dates: start: 20080304, end: 20080304
  5. DOUBLE DYE [Concomitant]
     Dates: start: 20080304, end: 20080304
  6. VITAMIN K TAB [Concomitant]
     Route: 030
     Dates: start: 20080304, end: 20080304
  7. SILVER NITRATE [Concomitant]
     Route: 061
     Dates: start: 20080304, end: 20080304

REACTIONS (1)
  - NEUTROPENIA [None]
